FAERS Safety Report 5933584-2 (Version None)
Quarter: 2008Q4

REPORT INFORMATION
  Report Type: 
  Country: None (occurrence: None)
  Receive Date: 20081010
  Receipt Date: 20071009
  Transmission Date: 20090506
  Serious: Yes (Other)
  Sender: FDA-Public Use
  Company Number: 41690

PATIENT
  Age: 35 Year
  Sex: Female
  Weight: 83.9154 kg

DRUGS (2)
  1. CHLOROPROACINE HCL [Suspect]
     Indication: CAESAREAN SECTION
     Dosage: 20MLVIA EPIDURAL CATHETER
     Route: 008
     Dates: start: 20070817
  2. BENZOCAINE [Concomitant]

REACTIONS (1)
  - DRUG INEFFECTIVE [None]
